FAERS Safety Report 12284232 (Version 2)
Quarter: 2016Q2

REPORT INFORMATION
  Report Type: Spontaneous
  Country: IL (occurrence: IL)
  Receive Date: 20160420
  Receipt Date: 20160425
  Transmission Date: 20160815
  Serious: Yes (Other)
  Sender: FDA-Public Use
  Company Number: IL-ROCHE-1743908

PATIENT
  Age: 56 Year
  Sex: Female

DRUGS (2)
  1. DERALIN [Concomitant]
     Active Substance: PROPRANOLOL HYDROCHLORIDE
  2. XOLAIR [Suspect]
     Active Substance: OMALIZUMAB
     Indication: CHRONIC SPONTANEOUS URTICARIA
     Route: 058
     Dates: start: 20150608

REACTIONS (6)
  - Thyroid disorder [Recovered/Resolved]
  - Concomitant disease aggravated [Unknown]
  - Hepatic cyst [Unknown]
  - Hypertension [Not Recovered/Not Resolved]
  - Blood glucose fluctuation [Recovered/Resolved]
  - Retinal detachment [Recovered/Resolved]

NARRATIVE: CASE EVENT DATE: 2016
